FAERS Safety Report 8788721 (Version 4)
Quarter: 2013Q1

REPORT INFORMATION
  Report Type: Spontaneous
  Country: CO (occurrence: CO)
  Receive Date: 20120917
  Receipt Date: 20130308
  Transmission Date: 20140127
  Serious: Yes (Other)
  Sender: FDA-Public Use
  Company Number: CO-AMGEN-COLSP2012057617

PATIENT
  Age: 66 Year
  Sex: Female

DRUGS (4)
  1. ENBREL [Suspect]
     Indication: RHEUMATOID ARTHRITIS
     Dosage: 50 MG, WEEKLY
     Route: 058
     Dates: start: 2005, end: 20130217
  2. MEDROL                             /00049601/ [Suspect]
     Indication: RHEUMATOID ARTHRITIS
     Dosage: HALF TABLET PER DAY ORALLY EVERY 3 DAYS
     Route: 048
     Dates: start: 2005
  3. METHOTREXATE SODIUM [Concomitant]
     Indication: RHEUMATOID ARTHRITIS
     Dosage: 5 MG, WEEKLY
     Route: 058
     Dates: start: 1997
  4. ACETAMINOPHEN W/CODEINE [Concomitant]
     Indication: RHEUMATOID ARTHRITIS
     Dosage: UNK
     Dates: start: 2006

REACTIONS (5)
  - Meniscus injury [Not Recovered/Not Resolved]
  - Procedural pain [Not Recovered/Not Resolved]
  - Immunodeficiency [Not Recovered/Not Resolved]
  - Tongue injury [Not Recovered/Not Resolved]
  - Drug dose omission [Not Recovered/Not Resolved]
